FAERS Safety Report 4948792-7 (Version None)
Quarter: 2006Q1

REPORT INFORMATION
  Report Type: 
  Country: None (occurrence: None)
  Receive Date: 20060315
  Receipt Date: 20060224
  Transmission Date: 20060701
  Serious: Yes (Hospitalization, Other)
  Sender: FDA-Public Use
  Company Number: US200511002446

PATIENT
  Age: 82 Year
  Sex: Female
  Weight: 66.7 kg

DRUGS (2)
  1. HUMULIN 70/30 [Suspect]
     Indication: DIABETES MELLITUS
     Dosage: 30 U, EACH MORNING; 17 U, EACH EVENING
     Dates: start: 19860101
  2. LEXAPRO [Concomitant]

REACTIONS (8)
  - BLOOD GLUCOSE INCREASED [None]
  - DYSPNOEA [None]
  - HYPERTENSION [None]
  - HYPOTHYROIDISM [None]
  - MALAISE [None]
  - PLEURAL EFFUSION [None]
  - WEIGHT DECREASED [None]
  - WEIGHT INCREASED [None]
